FAERS Safety Report 4645050-5 (Version None)
Quarter: 2005Q2

REPORT INFORMATION
  Report Type: 
  Country: None (occurrence: None)
  Receive Date: 20050422
  Receipt Date: 20050409
  Transmission Date: 20051028
  Serious: Yes (Hospitalization)
  Sender: FDA-Public Use
  Company Number: 2005057297

PATIENT
  Sex: Male
  Weight: 18 kg

DRUGS (5)
  1. MAGNEX (SULBACTAM, CEFOPERAZONE) [Suspect]
     Indication: ANTIBACTERIAL PROPHYLAXIS
     Dosage: 1 GRAM (1 GRAM, SINGLEADMINISTRATION), INTRAVENOUS
     Route: 042
     Dates: start: 20050405, end: 20050405
  2. AMIKACIN [Concomitant]
  3. CLAVULIN (AMOXICILLIN TRIHYDRATE, CLAVULANATE POTASSIUM) [Concomitant]
  4. PHYTONADIONE [Concomitant]
  5. ALL OTHER THERAPEUTIC PRODUCTS (ALL OTHER THERAPEUTIC PRODUCTS) [Concomitant]

REACTIONS (1)
  - POST PROCEDURAL HAEMORRHAGE [None]
